FAERS Safety Report 25585419 (Version 1)
Quarter: 2025Q3

REPORT INFORMATION
  Report Type: Spontaneous
  Country: EU (occurrence: EU)
  Receive Date: 20250721
  Receipt Date: 20250721
  Transmission Date: 20251021
  Serious: Yes (Other)
  Sender: CELLTRION
  Company Number: None

PATIENT

DRUGS (4)
  1. TRASTUZUMAB [Suspect]
     Active Substance: TRASTUZUMAB
     Indication: Breast neoplasm
     Route: 042
     Dates: start: 20240411, end: 20240813
  2. DOCETAXEL [Interacting]
     Active Substance: DOCETAXEL
     Indication: Breast neoplasm
     Route: 042
     Dates: start: 20240411, end: 20240601
  3. CARBOPLATIN [Interacting]
     Active Substance: CARBOPLATIN
     Indication: Breast neoplasm
     Route: 042
     Dates: start: 20240411, end: 20240611
  4. PERTUZUMAB [Interacting]
     Active Substance: PERTUZUMAB
     Indication: Breast neoplasm
     Route: 042
     Dates: start: 20240411, end: 20240813

REACTIONS (1)
  - Peripheral sensory neuropathy [Recovering/Resolving]

NARRATIVE: CASE EVENT DATE: 20240709
